FAERS Safety Report 9919893 (Version 1)
Quarter: 2014Q1

REPORT INFORMATION
  Report Type: Spontaneous
  Country: DE (occurrence: DE)
  Receive Date: 20140224
  Receipt Date: 20140224
  Transmission Date: 20141002
  Serious: Yes (Other)
  Sender: FDA-Public Use
  Company Number: DE-TEVA-463524GER

PATIENT
  Age: 0 Year
  Sex: 0

DRUGS (2)
  1. PACLITAXEL [Suspect]
     Route: 065
  2. TRASTUZUMAB [Suspect]
     Route: 065

REACTIONS (2)
  - Foetal growth restriction [Unknown]
  - Respiratory failure [Unknown]
